FAERS Safety Report 6815145-6 (Version None)
Quarter: 2010Q2

REPORT INFORMATION
  Report Type: 
  Country: None (occurrence: None)
  Receive Date: 20100630
  Receipt Date: 20100630
  Transmission Date: 20101027
  Serious: No
  Sender: FDA-Public Use
  Company Number: None

PATIENT
  Age: 50 Year
  Sex: Female

DRUGS (1)
  1. FLUOXETINE [Suspect]
     Indication: DEPRESSION
     Dosage: 20MG DAILY ORAL
     Route: 048

REACTIONS (4)
  - DEPRESSION [None]
  - DRUG EFFECT DECREASED [None]
  - FEELING ABNORMAL [None]
  - PRODUCT SUBSTITUTION ISSUE [None]
